FAERS Safety Report 14311452 (Version 1)
Quarter: 2017Q4

REPORT INFORMATION
  Report Type: Spontaneous
  Country: US (occurrence: US)
  Receive Date: 20171221
  Receipt Date: 20171221
  Transmission Date: 20180321
  Serious: No
  Sender: FDA-Public Use
  Company Number: US-NOVEN PHARMACEUTICALS, INC.-US2017001238

PATIENT

DRUGS (7)
  1. VITAMIN D3 [Concomitant]
     Active Substance: CHOLECALCIFEROL
  2. MINIVELLE [Suspect]
     Active Substance: ESTRADIOL
     Indication: HOT FLUSH
     Dosage: 0.1 MG, UNKNOWN
     Route: 062
  3. VITAMINS [Concomitant]
     Active Substance: VITAMINS
  4. ZINC. [Concomitant]
     Active Substance: ZINC
  5. MINIVELLE [Suspect]
     Active Substance: ESTRADIOL
     Indication: MOOD SWINGS
     Dosage: 0.075 MG, UNKNOWN
     Route: 062
     Dates: end: 201707
  6. PROGESTERONE. [Concomitant]
     Active Substance: PROGESTERONE
  7. MINIVELLE [Suspect]
     Active Substance: ESTRADIOL
     Indication: LIBIDO DECREASED
     Dosage: 0.075 MG, UNKNOWN
     Route: 062
     Dates: start: 201710

REACTIONS (3)
  - Therapy cessation [Recovered/Resolved]
  - Vaginal haemorrhage [Recovered/Resolved]
  - Off label use [Unknown]

NARRATIVE: CASE EVENT DATE: 201707
